FAERS Safety Report 16756100 (Version 2)
Quarter: 2023Q2

REPORT INFORMATION
  Report Type: Report from Study
  Country: FR (occurrence: FR)
  Receive Date: 20190829
  Receipt Date: 20230622
  Transmission Date: 20230722
  Serious: Yes (Hospitalization)
  Sender: FDA-Public Use
  Company Number: FR-SA-2019SA081565

PATIENT
  Age: 72 Year
  Sex: Male
  Weight: 56 kg

DRUGS (6)
  1. PREDNISONE [Suspect]
     Active Substance: PREDNISONE
     Indication: Diffuse large B-cell lymphoma
     Dosage: 100 MILLIGRAM, QD, DAY 1- DAY 5
     Route: 048
  2. RITUXIMAB [Suspect]
     Active Substance: RITUXIMAB
     Indication: Diffuse large B-cell lymphoma
     Dosage: 375 MILLIGRAM/SQ. METER, CYCLE,375 MG/M2 100 MG ON DAY 1 EVERY 21 DAY CYCLE
     Route: 048
  3. VINCRISTINE [Suspect]
     Active Substance: VINCRISTINE
     Indication: Diffuse large B-cell lymphoma
     Dosage: 1.4 MILLIGRAM/SQ. METER, CYCLE,1.4 MG/M2 ON 100 MG DAY 1 EVERY 21 DAY CYCLE
     Route: 042
  4. CYCLOPHOSPHAMIDE [Suspect]
     Active Substance: CYCLOPHOSPHAMIDE
     Indication: Diffuse large B-cell lymphoma
     Dosage: 750 MILLIGRAM/SQ. METER, CYCLE,750 MG/M2 ON 100 MG DAY 1  EVERY 21 DAY CYCLE
     Route: 042
  5. LENALIDOMIDE [Suspect]
     Active Substance: LENALIDOMIDE
     Indication: Diffuse large B-cell lymphoma
     Dosage: 15 MILLIGRAM, 1-14 DAY
     Route: 042
  6. DOXORUBICIN [Suspect]
     Active Substance: DOXORUBICIN
     Indication: Diffuse large B-cell lymphoma
     Dosage: 50 MG/M2  DAY 1  EVERY 21 DAY CYCLE50 MILLIGRAM/SQ. METER, CYCLE
     Route: 042

REACTIONS (3)
  - Dysarthria [Recovered/Resolved]
  - Pneumonia [Recovered/Resolved]
  - Arthritis bacterial [Recovered/Resolved]

NARRATIVE: CASE EVENT DATE: 20170317
